FAERS Safety Report 6660352-9 (Version None)
Quarter: 2010Q1

REPORT INFORMATION
  Report Type: 
  Country: None (occurrence: None)
  Receive Date: 20100331
  Receipt Date: 20100318
  Transmission Date: 20100710
  Serious: No
  Sender: FDA-Public Use
  Company Number: US-JNJFOC-20100306251

PATIENT
  Sex: Female
  Weight: 68.95 kg

DRUGS (4)
  1. FENTANYL-100 [Suspect]
     Indication: INTERVERTEBRAL DISC PROTRUSION
     Dosage: NDC# 0781-7242-55
     Route: 062
  2. NORCO [Concomitant]
     Indication: PAIN
     Route: 048
  3. XANAX [Concomitant]
     Indication: MUSCLE SPASMS
     Route: 048
  4. NEURONTIN [Concomitant]
     Indication: PAIN
     Route: 048

REACTIONS (3)
  - INAPPROPRIATE SCHEDULE OF DRUG ADMINISTRATION [None]
  - WITHDRAWAL SYNDROME [None]
  - WRONG TECHNIQUE IN DRUG USAGE PROCESS [None]
